FAERS Safety Report 17221470 (Version 2)
Quarter: 2020Q3

REPORT INFORMATION
  Report Type: Spontaneous
  Country: FR (occurrence: FR)
  Receive Date: 20200101
  Receipt Date: 20200713
  Transmission Date: 20201102
  Serious: Yes (Hospitalization)
  Sender: FDA-Public Use
  Company Number: FR-ROCHE-2504009

PATIENT
  Age: 61 Year
  Sex: Male

DRUGS (5)
  1. ROACTEMRA [Suspect]
     Active Substance: TOCILIZUMAB
     Indication: RHEUMATOID ARTHRITIS
     Dosage: 8 MG/KG
     Route: 042
     Dates: start: 2010, end: 201507
  2. DOLIPRANE [Suspect]
     Active Substance: ACETAMINOPHEN
     Indication: GAIT DISTURBANCE
     Route: 048
  3. IMETH [Suspect]
     Active Substance: METHOTREXATE SODIUM
     Indication: RHEUMATOID ARTHRITIS
     Dosage: 10 MG
     Route: 048
     Dates: start: 2003, end: 201604
  4. ROACTEMRA [Suspect]
     Active Substance: TOCILIZUMAB
     Indication: RHEUMATOID ARTHRITIS
     Route: 058
     Dates: start: 201507, end: 201604
  5. SPECIAFOLDINE [Suspect]
     Active Substance: FOLIC ACID
     Indication: PROPHYLAXIS
     Dosage: 10 MG
     Route: 048
     Dates: start: 2003, end: 201604

REACTIONS (3)
  - Lung neoplasm malignant [Not Recovered/Not Resolved]
  - Bronchial carcinoma [Not Recovered/Not Resolved]
  - Squamous cell carcinoma of lung [Not Recovered/Not Resolved]

NARRATIVE: CASE EVENT DATE: 201603
